FAERS Safety Report 18160504 (Version 1)
Quarter: 2020Q3

REPORT INFORMATION
  Report Type: Spontaneous
  Country: US (occurrence: US)
  Receive Date: 20200817
  Receipt Date: 20200817
  Transmission Date: 20201103
  Serious: No
  Sender: FDA-Public Use
  Company Number: None

PATIENT
  Age: 42 Year
  Sex: Female

DRUGS (8)
  1. VIVELLE [Concomitant]
     Active Substance: ESTRADIOL
  2. AZITHROMYCIN ANHYDROUS. [Concomitant]
     Active Substance: AZITHROMYCIN ANHYDROUS
  3. GANIRELIX AC 250/0. INJ [Suspect]
     Active Substance: GANIRELIX
     Dosage: ?          OTHER DOSE:250/0.5MI;OTHER ROUTE:INJECTON?
  4. PREGNYL [Concomitant]
     Active Substance: CHORIOGONADOTROPIN ALFA
  5. ESTRACE [Concomitant]
     Active Substance: ESTRADIOL
  6. MENOPUR [Concomitant]
     Active Substance: FOLLITROPIN\LUTEINIZING HORMONE
  7. ENDOMETRIN [Concomitant]
     Active Substance: PROGESTERONE
  8. FOLLISTIM [Concomitant]
     Active Substance: FOLLITROPIN

REACTIONS (1)
  - Hospitalisation [None]

NARRATIVE: CASE EVENT DATE: 20200731
